FAERS Safety Report 17345042 (Version 1)
Quarter: 2020Q1

REPORT INFORMATION
  Report Type: Spontaneous
  Country: US (occurrence: US)
  Receive Date: 20200129
  Receipt Date: 20200129
  Transmission Date: 20200409
  Serious: No
  Sender: FDA-Public Use
  Company Number: US-ALLERGAN-1951564US

PATIENT
  Sex: Female

DRUGS (2)
  1. XEOMIN [Concomitant]
     Active Substance: INCOBOTULINUMTOXINA
  2. BOTOX COSMETIC [Suspect]
     Active Substance: ONABOTULINUMTOXINA
     Indication: SKIN WRINKLING
     Dosage: UNK, SINGLE

REACTIONS (6)
  - Peripheral swelling [Unknown]
  - Abdominal pain upper [Unknown]
  - Anaphylactic reaction [Unknown]
  - Pruritus [Unknown]
  - Swelling [Unknown]
  - Injection site swelling [Unknown]
